FAERS Safety Report 11115451 (Version 1)
Quarter: 2015Q2

REPORT INFORMATION
  Report Type: Spontaneous
  Country: JP (occurrence: JP)
  Receive Date: 20150515
  Receipt Date: 20150515
  Transmission Date: 20150821
  Serious: Yes (Other)
  Sender: FDA-Public Use
  Company Number: JP-SA-2015SA062331

PATIENT
  Age: 60 Year
  Sex: Female

DRUGS (8)
  1. CAMPTO [Suspect]
     Active Substance: IRINOTECAN
     Indication: COLON CANCER
     Dosage: INJECTION
     Route: 041
  2. XELODA [Concomitant]
     Active Substance: CAPECITABINE
  3. ELPLAT [Suspect]
     Active Substance: OXALIPLATIN
     Indication: COLON CANCER
     Dosage: INJECTION, IV INFUSION SOLUTION
     Route: 041
  4. LEVOFOLINATE [Suspect]
     Active Substance: LEVOLEUCOVORIN CALCIUM
     Indication: COLON CANCER
     Dosage: INJECTION
     Route: 041
  5. 5-FU [Concomitant]
     Active Substance: FLUOROURACIL
  6. CAMPTO [Suspect]
     Active Substance: IRINOTECAN
     Indication: COLON CANCER
     Dosage: INJECTION?3 CYCLES
     Route: 041
  7. LEVOFOLINATE [Suspect]
     Active Substance: LEVOLEUCOVORIN CALCIUM
     Indication: COLON CANCER
     Dosage: INJECTION
     Route: 041
  8. AVASTIN [Concomitant]
     Active Substance: BEVACIZUMAB

REACTIONS (7)
  - Splenomegaly [Unknown]
  - Pleural effusion [Recovered/Resolved]
  - Pancytopenia [Recovering/Resolving]
  - Blood bilirubin increased [Recovering/Resolving]
  - Ascites [Recovered/Resolved]
  - Hepatic atrophy [Unknown]
  - Varices oesophageal [Unknown]
